FAERS Safety Report 22196873 (Version 3)
Quarter: 2023Q2

REPORT INFORMATION
  Report Type: Spontaneous
  Country: JP (occurrence: None)
  Receive Date: 20230411
  Receipt Date: 20230425
  Transmission Date: 20230721
  Serious: Yes (Death, Hospitalization, Other)
  Sender: FDA-Public Use
  Company Number: 2023A082434

PATIENT
  Age: 57 Year
  Sex: Male
  Weight: 51 kg

DRUGS (22)
  1. BREZTRI [Suspect]
     Active Substance: BUDESONIDE\FORMOTEROL\GLYCOPYRROLATE
     Indication: Chronic obstructive pulmonary disease
     Route: 055
     Dates: start: 20230310, end: 2023
  2. BREZTRI [Suspect]
     Active Substance: BUDESONIDE\FORMOTEROL\GLYCOPYRROLATE
     Indication: Chronic obstructive pulmonary disease
     Route: 055
     Dates: start: 2023, end: 20230329
  3. AMLODIPINE [Suspect]
     Active Substance: AMLODIPINE BESYLATE
     Indication: Hypertension
     Dosage: IN THE MORNING
     Route: 048
     Dates: end: 20230330
  4. CARVEDILOL [Suspect]
     Active Substance: CARVEDILOL
     Indication: Hypertension
     Dosage: IN THE MORNING
     Route: 048
     Dates: end: 20230330
  5. OLMESARTAN MEDOXOMIL [Suspect]
     Active Substance: OLMESARTAN MEDOXOMIL
     Indication: Hypertension
     Dosage: IN THE MORNING
     Route: 048
     Dates: end: 20230330
  6. LYRICA [Suspect]
     Active Substance: PREGABALIN
     Indication: Spinal osteoarthritis
     Dosage: AFTER LUNCH
     Route: 048
     Dates: end: 20230330
  7. ETHYL LOFLAZEPATE [Suspect]
     Active Substance: ETHYL LOFLAZEPATE
     Indication: Insomnia
     Dosage: IN THE EVENING
     Route: 048
     Dates: end: 20230330
  8. BELSOMRA [Suspect]
     Active Substance: SUVOREXANT
     Indication: Insomnia
     Dosage: BEFORE BEDTIME
     Route: 048
     Dates: end: 20230330
  9. ROZEREM [Suspect]
     Active Substance: RAMELTEON
     Indication: Insomnia
     Dosage: IN THE EVENING
     Route: 048
     Dates: end: 20230330
  10. TULOBUTEROL [Suspect]
     Active Substance: TULOBUTEROL
     Indication: Asthma
     Route: 062
     Dates: start: 20230120, end: 20230330
  11. SUCROFERRIC OXYHYDROXIDE [Suspect]
     Active Substance: SUCROFERRIC OXYHYDROXIDE
     Indication: Chronic kidney disease
     Route: 048
     Dates: start: 20230210, end: 20230330
  12. FERRIC CITRATE ANHYDROUS [Suspect]
     Active Substance: FERRIC CITRATE ANHYDROUS
     Indication: Chronic kidney disease
     Route: 048
     Dates: start: 20230308, end: 20230330
  13. MIANSERIN [Suspect]
     Active Substance: MIANSERIN
     Indication: Insomnia
     Dosage: IN THE EVENING
     Route: 048
     Dates: end: 20230330
  14. MIRTAZAPINE [Suspect]
     Active Substance: MIRTAZAPINE
     Indication: Insomnia
     Dosage: IN THE EVENING
     Route: 048
     Dates: end: 20230330
  15. LOXOPROFEN [Suspect]
     Active Substance: LOXOPROFEN
     Indication: Spinal osteoarthritis
     Route: 062
     Dates: end: 20230330
  16. ZONISAMIDE [Suspect]
     Active Substance: ZONISAMIDE
     Indication: Paralysis
     Dosage: AFTER BREAKFAST AND DINNER
     Route: 048
     Dates: end: 20230329
  17. VONOPRAZAN FUMARATE [Concomitant]
     Active Substance: VONOPRAZAN FUMARATE
     Dosage: DOSE UNKNOWN, IN THE EVENING
  18. LIMAPROST [Concomitant]
     Active Substance: LIMAPROST
  19. BIO-THREE [Concomitant]
     Active Substance: HERBALS
     Route: 048
  20. MAGNESIUM OXIDE [Concomitant]
     Active Substance: MAGNESIUM OXIDE
     Dosage: DOSE UNKNOWN
  21. AMITIZA [Concomitant]
     Active Substance: LUBIPROSTONE
     Dosage: DOSE UNKNOWN
  22. NORSPAN [Concomitant]
     Active Substance: BUPRENORPHINE
     Route: 062

REACTIONS (5)
  - Pneumonia aspiration [Fatal]
  - Seizure [Not Recovered/Not Resolved]
  - Epistaxis [Unknown]
  - Anaemia [Unknown]
  - Hiatus hernia [Unknown]

NARRATIVE: CASE EVENT DATE: 20230331
